FAERS Safety Report 7908698-8 (Version None)
Quarter: 2011Q4

REPORT INFORMATION
  Report Type: 
  Country: None (occurrence: None)
  Receive Date: 20111111
  Receipt Date: 20111102
  Transmission Date: 20120403
  Serious: Yes (Hospitalization)
  Sender: FDA-Public Use
  Company Number: ES-AMGEN-ESPSP2011057959

PATIENT
  Age: 22 Year
  Sex: Female

DRUGS (1)
  1. ENBREL [Suspect]
     Indication: JUVENILE ARTHRITIS
     Dosage: 50 MG, UNK
     Route: 065
     Dates: start: 20101124, end: 20101201

REACTIONS (3)
  - HYPERSENSITIVITY [None]
  - INFLAMMATION [None]
  - ERYTHEMA [None]
